FAERS Safety Report 9665731 (Version 1)
Quarter: 2013Q4

REPORT INFORMATION
  Report Type: Spontaneous
  Country: CA (occurrence: None)
  Receive Date: 20131031
  Receipt Date: 20131031
  Transmission Date: 20140711
  Serious: Yes (Disabling, Other)
  Sender: FDA-Public Use
  Company Number: None

PATIENT
  Age: 37 Year
  Sex: Female
  Weight: 72.58 kg

DRUGS (1)
  1. LEVOTHYROXINE [Suspect]
     Indication: HYPOTHYROIDISM
     Dosage: ALTERNATE SIX OR SEVEN PILLS ONCE DAILY
     Route: 048
     Dates: start: 20120327, end: 20121125

REACTIONS (20)
  - Weight increased [None]
  - Eye pain [None]
  - Stress [None]
  - Pain in extremity [None]
  - Back pain [None]
  - Feeling abnormal [None]
  - Gait disturbance [None]
  - Amnesia [None]
  - Anger [None]
  - Reading disorder [None]
  - Disturbance in attention [None]
  - Pruritus [None]
  - Insomnia [None]
  - Narcolepsy [None]
  - Apathy [None]
  - Loss of libido [None]
  - Menorrhagia [None]
  - Paraesthesia [None]
  - Electric shock [None]
  - Product substitution issue [None]
